FAERS Safety Report 4635204-6 (Version None)
Quarter: 2005Q2

REPORT INFORMATION
  Report Type: 
  Country: None (occurrence: None)
  Receive Date: 20050414
  Receipt Date: 20050407
  Transmission Date: 20051028
  Serious: Yes (Death)
  Sender: FDA-Public Use
  Company Number: US-JNJFOC-20050302857

PATIENT
  Sex: Male
  Weight: 14.52 kg

DRUGS (1)
  1. TOPAMAX [Suspect]
     Route: 065

REACTIONS (1)
  - CONVULSION [None]
